FAERS Safety Report 8336452-4 (Version None)
Quarter: 2012Q2

REPORT INFORMATION
  Report Type: 
  Country: None (occurrence: None)
  Receive Date: 20120504
  Receipt Date: 20120501
  Transmission Date: 20120825
  Serious: Yes (Disabling)
  Sender: FDA-Public Use
  Company Number: US-PFIZER INC-2012107114

PATIENT
  Sex: Female
  Weight: 79.365 kg

DRUGS (3)
  1. EFFEXOR XR [Suspect]
     Indication: DEPRESSION
     Dosage: 150 MG, 1X/DAY
     Route: 048
  2. PRAVASTATIN [Concomitant]
     Indication: BLOOD CHOLESTEROL INCREASED
     Dosage: UNK
  3. EFFEXOR XR [Suspect]
     Dosage: 150MG EVERY OTHER DAY INSTEAD OF 150MG ONCE A DAY
     Dates: start: 20120401

REACTIONS (2)
  - IMPAIRED WORK ABILITY [None]
  - ANKLE FRACTURE [None]
